FAERS Safety Report 5676660-4 (Version None)
Quarter: 2008Q1

REPORT INFORMATION
  Report Type: 
  Country: None (occurrence: None)
  Receive Date: 20080320
  Receipt Date: 20080320
  Transmission Date: 20080703
  Serious: Yes (Other)
  Sender: FDA-Public Use
  Company Number: None

PATIENT
  Age: 57 Year
  Sex: Female

DRUGS (1)
  1. FIORICET [Suspect]
     Indication: HEADACHE
     Dosage: PO Q 8-12 SECONDARY PRN
     Route: 048

REACTIONS (1)
  - ABDOMINAL DISCOMFORT [None]
